FAERS Safety Report 11992814 (Version 1)
Quarter: 2016Q1

REPORT INFORMATION
  Report Type: Spontaneous
  Country: US (occurrence: US)
  Receive Date: 20160203
  Receipt Date: 20160203
  Transmission Date: 20160526
  Serious: No
  Sender: FDA-Public Use
  Company Number: US-UCBSA-2015022817

PATIENT
  Age: 15 Year
  Sex: Male

DRUGS (4)
  1. FYCOMPA [Concomitant]
     Active Substance: PERAMPANEL
     Indication: SEIZURE
     Dosage: UNKNOWN DOSE
  2. KEPPRA [Suspect]
     Active Substance: LEVETIRACETAM
     Indication: SEIZURE
     Dosage: DOSE INCREASED
  3. ONFI [Concomitant]
     Active Substance: CLOBAZAM
     Indication: SEIZURE
  4. TRILEPTAL [Concomitant]
     Active Substance: OXCARBAZEPINE
     Indication: SEIZURE

REACTIONS (4)
  - Decreased appetite [Unknown]
  - Sleep disorder [Unknown]
  - Somnolence [Unknown]
  - Drug ineffective [Unknown]
